FAERS Safety Report 9244522 (Version 2)
Quarter: 2013Q2

REPORT INFORMATION
  Report Type: Report from Study
  Country: JP (occurrence: JP)
  Receive Date: 20130422
  Receipt Date: 20130614
  Transmission Date: 20140414
  Serious: Yes (Death, Hospitalization, Other)
  Sender: FDA-Public Use
  Company Number: PHHY2011JP24052

PATIENT
  Sex: Male

DRUGS (18)
  1. AFINITOR [Suspect]
     Indication: METASTATIC RENAL CELL CARCINOMA
     Dosage: 10 MG DAILY
     Route: 048
     Dates: start: 20100818, end: 20100819
  2. AFINITOR [Suspect]
     Dosage: 10 MG DAILY
     Route: 048
     Dates: start: 20100826, end: 20100927
  3. INTERFERON ALFA [Concomitant]
     Indication: METASTATIC RENAL CELL CARCINOMA
     Dosage: 3000000 IU,
     Dates: start: 20040405, end: 20090520
  4. INTERFERON ALFA [Concomitant]
     Dosage: 3000000 IU,
  5. INTERFERON ALFA [Concomitant]
     Dosage: 3000000 IU,
  6. TECELEUKIN [Concomitant]
     Indication: METASTATIC RENAL CELL CARCINOMA
     Dosage: 350000 IU,
     Dates: start: 20050204, end: 20070601
  7. TECELEUKIN [Concomitant]
     Dosage: 350000 IU,
  8. SUNITINIB MALATE [Concomitant]
     Indication: METASTATIC RENAL CELL CARCINOMA
     Dosage: 50 MG, UNK
     Route: 048
     Dates: start: 20100321, end: 20100806
  9. SORAFENIB TOSILATE [Concomitant]
     Indication: METASTATIC RENAL CELL CARCINOMA
     Dosage: 800 MG, UNK
     Route: 048
     Dates: start: 20080805, end: 20100114
  10. HACHIAZULE [Concomitant]
     Dosage: 6 G,
     Route: 048
     Dates: start: 20100818
  11. LOXONIN [Concomitant]
     Indication: METASTATIC RENAL CELL CARCINOMA
     Dosage: 3 DF,
     Route: 048
     Dates: start: 20100818
  12. ZYLORIC [Concomitant]
     Indication: HYPERURICAEMIA
     Dosage: 2 DF, UNK
     Route: 048
     Dates: start: 20100818
  13. TAKEPRON [Concomitant]
     Dosage: 1 DF, UNK
     Route: 048
     Dates: start: 20100818
  14. ZOMETA [Concomitant]
     Indication: METASTASES TO BONE
     Dosage: 4 MG, UNK
     Route: 042
     Dates: start: 20100831
  15. NORVASC [Concomitant]
     Dosage: 25 MG, UNK
     Route: 048
     Dates: start: 20101010
  16. ALLOID [Concomitant]
     Dates: start: 20101010
  17. PROMAC [Concomitant]
     Route: 048
     Dates: start: 20101010
  18. MAGLAX [Concomitant]
     Route: 048
     Dates: start: 20101006, end: 20101010

REACTIONS (8)
  - Malignant neoplasm progression [Fatal]
  - Metastases to lung [Fatal]
  - Malignant pleural effusion [Fatal]
  - Metastases to pleura [Fatal]
  - Hypophagia [Unknown]
  - General physical health deterioration [Unknown]
  - Stomatitis [Not Recovered/Not Resolved]
  - Haemoglobin decreased [Not Recovered/Not Resolved]
